FAERS Safety Report 5924205-3 (Version None)
Quarter: 2008Q4

REPORT INFORMATION
  Report Type: 
  Country: None (occurrence: None)
  Receive Date: 20081020
  Receipt Date: 20081009
  Transmission Date: 20090506
  Serious: Yes (Other)
  Sender: FDA-Public Use
  Company Number: CA-WYE-G02338008

PATIENT
  Sex: Male
  Weight: 118 kg

DRUGS (28)
  1. SIROLIMUS [Suspect]
     Indication: PROPHYLAXIS AGAINST TRANSPLANT REJECTION
     Route: 048
     Dates: start: 20080626, end: 20080626
  2. SIROLIMUS [Suspect]
     Route: 048
     Dates: start: 20080627, end: 20080703
  3. SIROLIMUS [Suspect]
     Route: 048
     Dates: start: 20080704, end: 20080708
  4. SIROLIMUS [Suspect]
     Route: 048
     Dates: start: 20080709
  5. MYCOPHENOLATE MOFETIL [Suspect]
     Route: 048
     Dates: start: 20080313
  6. METHYLPREDNISOLONE [Suspect]
     Route: 048
     Dates: start: 20080313, end: 20080313
  7. METHYLPREDNISOLONE [Suspect]
     Route: 048
     Dates: start: 20081008, end: 20081008
  8. METHYLPREDNISOLONE [Suspect]
     Route: 048
     Dates: start: 20081009, end: 20081010
  9. PREDNISONE [Suspect]
     Route: 048
     Dates: start: 20080517, end: 20081002
  10. PREDNISONE [Suspect]
     Route: 048
     Dates: start: 20081003, end: 20081008
  11. IRBESARTAN [Concomitant]
     Route: 048
     Dates: start: 20081002
  12. DILTIAZEM HCL [Concomitant]
     Route: 048
     Dates: start: 20080116, end: 20080324
  13. DILTIAZEM HCL [Concomitant]
     Route: 048
     Dates: start: 20080325
  14. CLONIDINE [Concomitant]
     Route: 048
     Dates: start: 20080316, end: 20081002
  15. METOPROLOL TARTRATE [Concomitant]
     Route: 048
     Dates: start: 20080316, end: 20080612
  16. METOPROLOL TARTRATE [Concomitant]
     Route: 048
     Dates: start: 20080613
  17. LIPITOR [Concomitant]
     Route: 048
     Dates: start: 20040902, end: 20080312
  18. LIPITOR [Concomitant]
     Route: 048
     Dates: start: 20080501, end: 20080728
  19. LIPITOR [Concomitant]
     Route: 048
     Dates: start: 20080729, end: 20080919
  20. LIPITOR [Concomitant]
     Route: 048
     Dates: start: 20080920
  21. TACROLIMUS [Suspect]
     Route: 048
     Dates: start: 20080316, end: 20080318
  22. TACROLIMUS [Suspect]
     Route: 048
     Dates: start: 20080319, end: 20080319
  23. TACROLIMUS [Suspect]
     Route: 048
     Dates: start: 20080320, end: 20080401
  24. TACROLIMUS [Suspect]
     Route: 048
     Dates: start: 20080402, end: 20080421
  25. TACROLIMUS [Suspect]
     Route: 048
     Dates: start: 20080422, end: 20080429
  26. TACROLIMUS [Suspect]
     Route: 048
     Dates: start: 20080430, end: 20080625
  27. DACLIZUMAB [Suspect]
     Indication: PROPHYLAXIS AGAINST TRANSPLANT REJECTION
     Route: 048
     Dates: start: 20080313, end: 20080313
  28. DACLIZUMAB [Suspect]
     Route: 048
     Dates: start: 20080326, end: 20080326

REACTIONS (1)
  - KIDNEY TRANSPLANT REJECTION [None]
